FAERS Safety Report 13740143 (Version 1)
Quarter: 2017Q3

REPORT INFORMATION
  Report Type: Spontaneous
  Country: US (occurrence: US)
  Receive Date: 20170710
  Receipt Date: 20170710
  Transmission Date: 20171127
  Serious: Yes (Hospitalization, Other)
  Sender: FDA-Public Use
  Company Number: None

PATIENT
  Age: 14 Year
  Sex: Male

DRUGS (1)
  1. ENBREL [Suspect]
     Active Substance: ETANERCEPT
     Dosage: ?          OTHER DOSE:MG;OTHER FREQUENCY:ONCE PER WEEK;?
     Route: 058

REACTIONS (3)
  - Abdominal pain [None]
  - Vomiting [None]
  - Pancreatitis necrotising [None]

NARRATIVE: CASE EVENT DATE: 20170703
